FAERS Safety Report 4808462-2 (Version None)
Quarter: 2005Q4

REPORT INFORMATION
  Report Type: 
  Country: None (occurrence: None)
  Receive Date: 20051025
  Receipt Date: 20050913
  Transmission Date: 20060501
  Serious: Yes (Death, Other)
  Sender: FDA-Public Use
  Company Number: JP-BRISTOL-MYERS SQUIBB COMPANY-13155924

PATIENT
  Age: 52 Year
  Sex: Female

DRUGS (1)
  1. IFOMIDE [Suspect]
     Indication: UTERINE LEIOMYOSARCOMA

REACTIONS (2)
  - RHABDOMYOSARCOMA [None]
  - TREATMENT RELATED SECONDARY MALIGNANCY [None]
